FAERS Safety Report 10343487 (Version 6)
Quarter: 2015Q2

REPORT INFORMATION
  Report Type: Spontaneous
  Country: US (occurrence: US)
  Receive Date: 20140725
  Receipt Date: 20150521
  Transmission Date: 20150821
  Serious: Yes (Hospitalization, Other)
  Sender: FDA-Public Use
  Company Number: US-PFIZER INC-2014208418

PATIENT
  Age: 56 Year
  Sex: Female
  Weight: 58 kg

DRUGS (13)
  1. LORAZEPAM. [Concomitant]
     Active Substance: LORAZEPAM
     Indication: ANXIETY
     Dosage: 2 MG, AT BEDTIME
     Route: 048
     Dates: start: 2009
  2. CHANTIX [Suspect]
     Active Substance: VARENICLINE TARTRATE
     Indication: SMOKING CESSATION THERAPY
     Dosage: 1 DF, DAILY
     Route: 048
  3. COREG [Concomitant]
     Active Substance: CARVEDILOL
     Indication: BLOOD PRESSURE
     Dosage: 12.5 MG, 2X/DAY
     Route: 048
  4. MICROZIDE [Concomitant]
     Active Substance: HYDROCHLOROTHIAZIDE
     Indication: BLOOD PRESSURE
     Dosage: 25 MG, 1X/DAY
     Route: 048
  5. HYDROCHLOROTHIAZIDE. [Concomitant]
     Active Substance: HYDROCHLOROTHIAZIDE
     Indication: BLOOD PRESSURE
     Dosage: 25 MG, DAILY
     Route: 048
     Dates: start: 2011
  6. TOVIAZ [Concomitant]
     Active Substance: FESOTERODINE FUMARATE
     Dosage: UNK
  7. LEVOTHROID [Concomitant]
     Active Substance: LEVOTHYROXINE SODIUM
     Indication: THYROID DISORDER
     Dosage: 25 MG, 1X/DAY
     Route: 048
  8. ASPIRIN. [Concomitant]
     Active Substance: ASPIRIN
     Indication: ANTICOAGULANT THERAPY
     Dosage: 81 MG, DAILY
     Route: 048
     Dates: start: 2011
  9. LYRICA [Concomitant]
     Active Substance: PREGABALIN
     Dosage: UNK
  10. TEMAZEPAM. [Concomitant]
     Active Substance: TEMAZEPAM
     Indication: SLEEP DISORDER
     Dosage: 30 MG, AT NIGHT
     Route: 048
     Dates: start: 2009
  11. BENAZEPRIL [Concomitant]
     Active Substance: BENAZEPRIL\BENAZEPRIL HYDROCHLORIDE
     Indication: BLOOD PRESSURE
     Dosage: 40 MG, 1X/DAY
     Route: 048
  12. FLEXERIL [Concomitant]
     Active Substance: CYCLOBENZAPRINE HYDROCHLORIDE
     Indication: MUSCLE RELAXANT THERAPY
     Dosage: 10 MG AT BEDTIME
     Route: 048
  13. CELEXA [Concomitant]
     Active Substance: CITALOPRAM HYDROBROMIDE
     Indication: DEPRESSION
     Dosage: UNK
     Route: 048

REACTIONS (13)
  - Feeling jittery [Unknown]
  - Condition aggravated [Not Recovered/Not Resolved]
  - Drug intolerance [Recovered/Resolved]
  - Nervousness [Unknown]
  - Dizziness [Recovered/Resolved]
  - Congestive cardiomyopathy [Not Recovered/Not Resolved]
  - Hyperhidrosis [Unknown]
  - Hypertension [Recovering/Resolving]
  - Seizure [Not Recovered/Not Resolved]
  - Cardiac disorder [Recovered/Resolved]
  - Nausea [Recovered/Resolved]
  - Aortic aneurysm [Not Recovered/Not Resolved]
  - Tremor [Unknown]
